FAERS Safety Report 4660946-6 (Version None)
Quarter: 2005Q2

REPORT INFORMATION
  Report Type: 
  Country: None (occurrence: None)
  Receive Date: 20050511
  Receipt Date: 20050504
  Transmission Date: 20051028
  Serious: Yes (Hospitalization, Other)
  Sender: FDA-Public Use
  Company Number: 200511401BCC

PATIENT
  Age: 51 Year
  Sex: Male
  Weight: 83.9154 kg

DRUGS (4)
  1. ASPIRIN [Suspect]
     Indication: BACK PAIN
     Dosage: ORAL
     Route: 048
  2. ASPIRIN [Suspect]
     Indication: PAIN
     Dosage: ORAL
     Route: 048
  3. ASPIRIN [Suspect]
     Indication: ROAD TRAFFIC ACCIDENT
     Dosage: ORAL
     Route: 048
  4. ALKA SELTZER REGULAR FORMULA [Suspect]
     Indication: STOMACH DISCOMFORT
     Dosage: 650 MG, TOTAL DAILY
     Dates: start: 20040501

REACTIONS (10)
  - APHAGIA [None]
  - CONSTIPATION [None]
  - DUODENAL ULCER [None]
  - GASTRITIS EROSIVE [None]
  - HIATUS HERNIA [None]
  - INTESTINAL OBSTRUCTION [None]
  - OESOPHAGITIS [None]
  - RECTAL HAEMORRHAGE [None]
  - SMALL INTESTINE ULCER [None]
  - STOMACH DISCOMFORT [None]
